FAERS Safety Report 8625748-4 (Version None)
Quarter: 2012Q3

REPORT INFORMATION
  Report Type: 
  Country: None (occurrence: None)
  Receive Date: 20120827
  Receipt Date: 20120817
  Transmission Date: 20120928
  Serious: Yes (Other)
  Sender: FDA-Public Use
  Company Number: US-ASTRAZENECA-2012SE60152

PATIENT
  Age: 71 Year
  Sex: Male
  Weight: 81.6 kg

DRUGS (10)
  1. PRILOSEC [Suspect]
     Dosage: GENERIC
     Route: 048
  2. XYZAL [Concomitant]
     Indication: HYPERSENSITIVITY
  3. VITAMIN D [Concomitant]
     Dosage: 2000
  4. TOPROL-XL [Suspect]
     Indication: BLOOD PRESSURE ABNORMAL
     Route: 048
  5. PRILOSEC [Suspect]
     Indication: DYSPEPSIA
     Route: 048
  6. AMLODIPINE [Concomitant]
     Indication: BLOOD PRESSURE ABNORMAL
  7. DONEPEZIL HCL [Concomitant]
     Indication: MEMORY IMPAIRMENT
  8. HYDRALAZINE HCL [Concomitant]
     Indication: BLOOD PRESSURE ABNORMAL
  9. LIPITOR [Concomitant]
     Indication: BLOOD CHOLESTEROL ABNORMAL
  10. BRILINTA [Suspect]
     Indication: STENT PLACEMENT
     Route: 048

REACTIONS (8)
  - OEDEMA PERIPHERAL [None]
  - BLOOD CREATININE INCREASED [None]
  - DYSPNOEA [None]
  - GASTROOESOPHAGEAL REFLUX DISEASE [None]
  - DILATATION VENTRICULAR [None]
  - JOINT SWELLING [None]
  - HIATUS HERNIA [None]
  - HEADACHE [None]
